FAERS Safety Report 4826811-6 (Version None)
Quarter: 2005Q4

REPORT INFORMATION
  Report Type: 
  Country: None (occurrence: None)
  Receive Date: 20051014
  Receipt Date: 20050622
  Transmission Date: 20060501
  Serious: No
  Sender: FDA-Public Use
  Company Number: 2005SP001553

PATIENT
  Age: 67 Year
  Sex: Male
  Weight: 92.9874 kg

DRUGS (5)
  1. LUNESTA [Suspect]
     Indication: INSOMNIA
     Dosage: 2 MG;HS;ORAL
     Route: 048
     Dates: start: 20050615, end: 20050615
  2. BETA BLOCKING AGENTS [Concomitant]
  3. ASPIRIN [Concomitant]
  4. CALCIUM CHANNEL BLOCKER [Concomitant]
  5. STATIN [Concomitant]

REACTIONS (1)
  - DYSKINESIA [None]
